FAERS Safety Report 8416150-9 (Version None)
Quarter: 2012Q2

REPORT INFORMATION
  Report Type: 
  Country: None (occurrence: None)
  Receive Date: 20120606
  Receipt Date: 20120531
  Transmission Date: 20120825
  Serious: Yes (Other)
  Sender: FDA-Public Use
  Company Number: US-PFIZER INC-2012131658

PATIENT
  Sex: Female
  Weight: 85 kg

DRUGS (15)
  1. SYNTHROID [Concomitant]
     Dosage: 25 UG, 1X/DAY
  2. HYZAAR [Concomitant]
     Dosage: 100/12.5 MG, 1X/DAY
  3. SPIRIVA [Concomitant]
     Dosage: UNK, 1X/DAY
  4. XANAX [Concomitant]
     Dosage: 1 MG, 4X/DAY
  5. METFORMIN [Concomitant]
     Dosage: 1000 MG, 1X/DAY
  6. LYRICA [Suspect]
     Indication: NEUROPATHY PERIPHERAL
     Dosage: 200 MG, 2X/DAY
     Route: 048
     Dates: start: 20120510
  7. ELAVIL [Concomitant]
     Dosage: 30 MG, 1X/DAY
  8. RANITIDINE [Concomitant]
     Dosage: UNK, 1X/DAY
  9. ADVAIR DISKUS 100/50 [Concomitant]
     Dosage: UNK, 2X/DAY
  10. FERROUS SULFATE [Concomitant]
     Dosage: 325 MG, 1X/DAY
  11. CRESTOR [Concomitant]
     Dosage: 40 MG, 1X/DAY
  12. ACETYLSALICYLIC ACID [Concomitant]
     Dosage: 81 MG, 1X/DAY
  13. PAXIL [Concomitant]
     Dosage: 60 MG, 1X/DAY
  14. LANTUS [Concomitant]
     Dosage: UNK, 1X/DAY
  15. PLAVIX [Concomitant]
     Dosage: 75 MG, 1X/DAY

REACTIONS (4)
  - ARTHRALGIA [None]
  - FALL [None]
  - HYPOAESTHESIA [None]
  - THROMBOSIS [None]
